FAERS Safety Report 12586299 (Version 1)
Quarter: 2016Q3

REPORT INFORMATION
  Report Type: Spontaneous
  Country: US (occurrence: None)
  Receive Date: 20160722
  Receipt Date: 20160722
  Transmission Date: 20161109
  Serious: Yes (Other)
  Sender: FDA-Public Use
  Company Number: None

PATIENT
  Age: 28 Year
  Sex: Female
  Weight: 65.77 kg

DRUGS (2)
  1. LINZESS [Concomitant]
     Active Substance: LINACLOTIDE
  2. LAMISIL [Suspect]
     Active Substance: TERBINAFINE HYDROCHLORIDE
     Indication: FUNGAL SKIN INFECTION
     Dosage: 90 TABLET(S) IN THE MORNING TAKEN BY MOUTH
     Route: 048
     Dates: start: 20160524, end: 20160708

REACTIONS (4)
  - Malaise [None]
  - Ageusia [None]
  - Nausea [None]
  - Dizziness [None]

NARRATIVE: CASE EVENT DATE: 20160708
